FAERS Safety Report 5109123-5 (Version None)
Quarter: 2006Q3

REPORT INFORMATION
  Report Type: 
  Country: None (occurrence: None)
  Receive Date: 20060920
  Receipt Date: 20060602
  Transmission Date: 20061208
  Serious: Yes (Death)
  Sender: FDA-Public Use
  Company Number: DE-ROCHE-450239

PATIENT
  Age: 65 Year
  Sex: Male

DRUGS (4)
  1. MYCOPHENOLATE MOFETIL [Suspect]
     Route: 048
     Dates: start: 20060103
  2. FK506 [Suspect]
     Route: 048
     Dates: start: 20060110, end: 20060407
  3. DECORTIN-H [Suspect]
     Indication: DRUG USE FOR UNKNOWN INDICATION
     Route: 048
     Dates: start: 20060103
  4. CORTICOSTEROIDS [Concomitant]

REACTIONS (5)
  - ANURIA [None]
  - DUODENAL ULCER HAEMORRHAGE [None]
  - MULTI-ORGAN FAILURE [None]
  - PERITONITIS [None]
  - RENAL IMPAIRMENT [None]
